FAERS Safety Report 6596721-5 (Version None)
Quarter: 2010Q1

REPORT INFORMATION
  Report Type: 
  Country: None (occurrence: None)
  Receive Date: 20100212
  Receipt Date: 20100121
  Transmission Date: 20100710
  Serious: Yes (Other)
  Sender: FDA-Public Use
  Company Number: DSA_42429_2010

PATIENT
  Sex: Female

DRUGS (2)
  1. XENAZINE [Suspect]
     Indication: TARDIVE DYSKINESIA
     Dosage: 1/2 25 MG TABLET Q A.M. ORAL, 25 MG QD ORAL
     Route: 048
     Dates: start: 20100101, end: 20100101
  2. XENAZINE [Suspect]
     Indication: TARDIVE DYSKINESIA
     Dosage: 1/2 25 MG TABLET Q A.M. ORAL, 25 MG QD ORAL
     Route: 048
     Dates: start: 20100101

REACTIONS (2)
  - FALL [None]
  - LOSS OF CONSCIOUSNESS [None]
